FAERS Safety Report 8480482-9 (Version None)
Quarter: 2012Q3

REPORT INFORMATION
  Report Type: 
  Country: None (occurrence: None)
  Receive Date: 20120702
  Receipt Date: 20120618
  Transmission Date: 20120928
  Serious: Yes (Other)
  Sender: FDA-Public Use
  Company Number: FR-BIOGENIDEC-2012BI023064

PATIENT
  Age: 44 Year
  Sex: Female

DRUGS (4)
  1. KARDEGIC [Concomitant]
     Indication: HYPERTENSION
  2. ENALAPRIL MALEATE [Concomitant]
     Indication: HYPERTENSION
  3. AVONEX [Suspect]
     Indication: MULTIPLE SCLEROSIS
     Route: 030
     Dates: start: 19990101
  4. ADALAT [Concomitant]
     Indication: HYPERTENSION

REACTIONS (1)
  - RAYNAUD'S PHENOMENON [None]
